FAERS Safety Report 19005916 (Version 2)
Quarter: 2021Q1

REPORT INFORMATION
  Report Type: Spontaneous
  Country: US (occurrence: US)
  Receive Date: 20210314
  Receipt Date: 20210325
  Transmission Date: 20210420
  Serious: No
  Sender: FDA-Public Use
  Company Number: US-SA-2021SA081339

PATIENT
  Age: 62 Year
  Sex: Female

DRUGS (3)
  1. DUPIXENT [Suspect]
     Active Substance: DUPILUMAB
     Dosage: UNK
     Dates: start: 202003
  2. DUPIXENT [Suspect]
     Active Substance: DUPILUMAB
     Indication: ECZEMA
     Dosage: 300 MG, QOW
     Dates: start: 201907, end: 202001
  3. DUPIXENT [Suspect]
     Active Substance: DUPILUMAB
     Route: 065

REACTIONS (2)
  - Inflammation [Not Recovered/Not Resolved]
  - Eczema [Recovering/Resolving]

NARRATIVE: CASE EVENT DATE: 2020
